FAERS Safety Report 9450338 (Version 3)
Quarter: 2014Q1

REPORT INFORMATION
  Report Type: Spontaneous
  Country: FR (occurrence: FR)
  Receive Date: 20130809
  Receipt Date: 20140108
  Transmission Date: 20141002
  Serious: Yes (Hospitalization)
  Sender: FDA-Public Use
  Company Number: FR-BAYER-2013-092471

PATIENT
  Age: 65 Year
  Sex: Female
  Weight: 41 kg

DRUGS (10)
  1. CIFLOX [Suspect]
     Dosage: UNK
     Dates: start: 20130525, end: 20130526
  2. CIFLOX [Suspect]
     Dosage: UNK
     Dates: start: 20130601, end: 20130602
  3. BACTRIM [Suspect]
     Dosage: UNK
     Dates: start: 20130110, end: 20130506
  4. BACTRIM [Suspect]
     Dosage: UNK
     Dates: start: 20130527, end: 20130603
  5. ZELITREX [Suspect]
     Dosage: UNK
     Dates: start: 20130110, end: 20130506
  6. ZELITREX [Suspect]
     Dosage: UNK
     Dates: start: 20130527, end: 20130603
  7. LEDERFOLINE [Suspect]
     Dosage: UNK
     Dates: start: 20130527, end: 20130603
  8. AUGMENTIN [Suspect]
     Dosage: UNK
     Route: 048
     Dates: start: 20130525, end: 20130526
  9. AUGMENTIN [Suspect]
     Dosage: UNK
     Route: 048
     Dates: start: 20130601, end: 20130602
  10. MELPHALAN [Suspect]
     Dosage: UNK
     Dates: start: 20130506

REACTIONS (9)
  - Drug reaction with eosinophilia and systemic symptoms [Recovered/Resolved]
  - Rash maculo-papular [Recovered/Resolved]
  - Pyrexia [Recovered/Resolved]
  - Face oedema [Recovered/Resolved]
  - Eosinophilia [Recovered/Resolved]
  - Hepatitis [Recovered/Resolved]
  - Human herpesvirus 6 infection [Recovered/Resolved]
  - Thrombocytopenia [Unknown]
  - Anaemia [Unknown]
